FAERS Safety Report 19442809 (Version 1)
Quarter: 2021Q2

REPORT INFORMATION
  Report Type: Report from Study
  Country: None (occurrence: US)
  Receive Date: 20210621
  Receipt Date: 20210621
  Transmission Date: 20210717
  Serious: Yes (Hospitalization, Other)
  Sender: FDA-Public Use
  Company Number: US-ABBVIE-21K-163-3875517-00

PATIENT
  Sex: Female

DRUGS (3)
  1. PFIZER?BIONTECH COVID?19 VACCINE [Concomitant]
     Active Substance: TOZINAMERAN
     Dosage: MANUFACTURER: PFIZER?2ND DOSE
     Route: 030
     Dates: start: 2021, end: 2021
  2. RINVOQ [Suspect]
     Active Substance: UPADACITINIB
     Indication: RHEUMATOID ARTHRITIS
     Route: 048
     Dates: end: 202104
  3. PFIZER?BIONTECH COVID?19 VACCINE [Concomitant]
     Active Substance: TOZINAMERAN
     Indication: COVID-19 IMMUNISATION
     Dosage: MANUFACTURER: PFIZER?1ST DOSE
     Route: 030
     Dates: start: 2021, end: 2021

REACTIONS (5)
  - COVID-19 [Recovering/Resolving]
  - Intestinal obstruction [Unknown]
  - Asthenia [Unknown]
  - Urinary tract infection [Not Recovered/Not Resolved]
  - Nasopharyngitis [Unknown]

NARRATIVE: CASE EVENT DATE: 2021
